FAERS Safety Report 20599181 (Version 2)
Quarter: 2022Q2

REPORT INFORMATION
  Report Type: Spontaneous
  Country: US (occurrence: US)
  Receive Date: 20220315
  Receipt Date: 20220504
  Transmission Date: 20220721
  Serious: No
  Sender: FDA-Public Use
  Company Number: US-SA-SAC20220309001909

PATIENT
  Sex: Female

DRUGS (3)
  1. AUBAGIO [Suspect]
     Active Substance: TERIFLUNOMIDE
     Indication: Multiple sclerosis
     Dosage: 7 MG, QD
     Route: 048
     Dates: start: 20201030
  2. AUBAGIO [Suspect]
     Active Substance: TERIFLUNOMIDE
     Dosage: 7 MG QD
     Route: 048
     Dates: start: 202105
  3. MODAFINIL [Concomitant]
     Active Substance: MODAFINIL

REACTIONS (5)
  - Gastrointestinal disorder [Unknown]
  - Non-cardiac chest pain [Unknown]
  - Drug hypersensitivity [Unknown]
  - Anxiety [Unknown]
  - Alopecia [Unknown]
